FAERS Safety Report 7409186-8 (Version None)
Quarter: 2011Q2

REPORT INFORMATION
  Report Type: 
  Country: None (occurrence: None)
  Receive Date: 20110407
  Receipt Date: 20110407
  Transmission Date: 20111010
  Serious: No
  Sender: FDA-Public Use
  Company Number: None

PATIENT
  Age: 85 Year
  Sex: Male
  Weight: 81 kg

DRUGS (1)
  1. VANCOMYCIN [Suspect]
     Dosage: 1 GM BID IV
     Route: 042
     Dates: start: 20080723, end: 20080728

REACTIONS (1)
  - RASH [None]
